FAERS Safety Report 9377970 (Version 2)
Quarter: 2013Q3

REPORT INFORMATION
  Report Type: Spontaneous
  Country: ES (occurrence: ES)
  Receive Date: 20130701
  Receipt Date: 20130711
  Transmission Date: 20140515
  Serious: No
  Sender: FDA-Public Use
  Company Number: ES-UCBSA-089777

PATIENT
  Age: 51 Year
  Sex: Female
  Weight: 65 kg

DRUGS (5)
  1. VIMPAT [Suspect]
     Indication: MIGRAINE
     Route: 048
     Dates: start: 20130115, end: 20130202
  2. PROGESTERONE [Concomitant]
     Dosage: DOSE: 100 (UNITS UNSPECIFIED) ONCE DAILY.
     Route: 048
     Dates: start: 2010
  3. ESTRADIOL [Concomitant]
     Dosage: DOSE: 25 (UNITS UNSPECIFIED)
     Route: 062
     Dates: start: 2010
  4. IBUPROFEN [Concomitant]
     Dosage: DOSE: UNKNOWN
  5. PARACETAMOL [Concomitant]
     Dosage: DOSE: UNKNOWN

REACTIONS (1)
  - Rash [Recovered/Resolved]
